FAERS Safety Report 8506725 (Version 3)
Quarter: 2012Q4

REPORT INFORMATION
  Report Type: Report from Study
  Country: US (occurrence: US)
  Receive Date: 20120412
  Receipt Date: 20120831
  Transmission Date: 20130627
  Serious: Yes (Death, Hospitalization)
  Sender: FDA-Public Use
  Company Number: US-PFIZER INC-2012088538

PATIENT
  Age: 77 Year
  Sex: Male
  Weight: 67 kg

DRUGS (1)
  1. DOXORUBICIN HCL [Suspect]
     Indication: SARCOMA
     Dosage: 102 mg (60 mg/m2), UNK
     Route: 042
     Dates: start: 20111018

REACTIONS (2)
  - Sepsis [Fatal]
  - Urinary tract infection [Recovering/Resolving]
